FAERS Safety Report 12837393 (Version 2)
Quarter: 2016Q4

REPORT INFORMATION
  Report Type: Report from Study
  Country: RO (occurrence: RO)
  Receive Date: 20161011
  Receipt Date: 20161104
  Transmission Date: 20170207
  Serious: Yes (Hospitalization, Other)
  Sender: FDA-Public Use
  Company Number: RO-B.I. PHARMACEUTICALS,INC./RIDGEFIELD-2016-BI-50625BI

PATIENT
  Age: 77 Year
  Sex: Male
  Weight: 99.7 kg

DRUGS (11)
  1. BISOPROLOL [Concomitant]
     Active Substance: BISOPROLOL
     Indication: HYPERTENSION
     Route: 048
     Dates: start: 20110930
  2. SPIRONOLACTONA [Concomitant]
     Indication: CONGESTIVE CARDIOMYOPATHY
     Route: 048
     Dates: start: 20110930
  3. ELIQUIS [Concomitant]
     Active Substance: APIXABAN
     Indication: MYOCARDIAL INFARCTION
     Route: 048
     Dates: start: 20160805
  4. TROMBOSTOP [Concomitant]
     Indication: MYOCARDIAL INFARCTION
     Route: 048
     Dates: start: 20110930
  5. ATORIS [Concomitant]
     Active Substance: ATORVASTATIN CALCIUM
     Indication: HYPERLIPIDAEMIA
     Route: 048
     Dates: start: 20140526
  6. NITROMINT [Concomitant]
     Indication: ANGINA PECTORIS
     Route: 048
     Dates: start: 20140526
  7. DIGOXIN. [Concomitant]
     Active Substance: DIGOXIN
     Indication: ATRIAL FIBRILLATION
     Route: 048
     Dates: start: 20110930
  8. LEVEMIR [Concomitant]
     Active Substance: INSULIN DETEMIR
     Indication: DIABETES MELLITUS
     Route: 058
     Dates: start: 20160719
  9. ATACAND [Concomitant]
     Active Substance: CANDESARTAN CILEXETIL
     Indication: HYPERTENSION
     Route: 048
     Dates: start: 20140526
  10. NOVORAPID [Concomitant]
     Active Substance: INSULIN ASPART
     Indication: DIABETES MELLITUS
     Route: 058
     Dates: start: 20130422
  11. BLINDED LINAGLIPTIN [Suspect]
     Active Substance: LINAGLIPTIN
     Indication: TYPE 2 DIABETES MELLITUS
     Route: 048
     Dates: start: 20150218, end: 20150623

REACTIONS (13)
  - Overdose [Recovered/Resolved]
  - Gastric ulcer [Not Recovered/Not Resolved]
  - Duodenal polyp [Not Recovered/Not Resolved]
  - Peripheral arterial occlusive disease [Not Recovered/Not Resolved]
  - Polycythaemia [Not Recovered/Not Resolved]
  - Atrial flutter [Recovered/Resolved]
  - Melaena [Recovered/Resolved]
  - Gastric disorder [Not Recovered/Not Resolved]
  - Gastritis erosive [Not Recovered/Not Resolved]
  - Gouty arthritis [Not Recovered/Not Resolved]
  - Upper gastrointestinal haemorrhage [Recovered/Resolved]
  - Electrolyte imbalance [Recovered/Resolved]
  - Hyperkalaemia [Recovered/Resolved]

NARRATIVE: CASE EVENT DATE: 20160724
